FAERS Safety Report 12090926 (Version 5)
Quarter: 2016Q2

REPORT INFORMATION
  Report Type: Report from Study
  Country: US (occurrence: US)
  Receive Date: 20160218
  Receipt Date: 20160620
  Transmission Date: 20160815
  Serious: Yes (Death, Hospitalization)
  Sender: FDA-Public Use
  Company Number: US-ACTELION-A-NJ2016-130044

PATIENT
  Age: 72 Year
  Sex: Female

DRUGS (4)
  1. TYVASO [Concomitant]
     Active Substance: TREPROSTINIL
  2. REVATIO [Concomitant]
     Active Substance: SILDENAFIL CITRATE
  3. OPSUMIT [Suspect]
     Active Substance: MACITENTAN
     Indication: PULMONARY ARTERIAL HYPERTENSION
     Dosage: 10 MG, QD
     Route: 048
     Dates: start: 20150402, end: 20160604
  4. OXYGEN. [Concomitant]
     Active Substance: OXYGEN
     Dosage: 7 L/MIN, UNK

REACTIONS (7)
  - Dizziness [Unknown]
  - Death [Fatal]
  - Muscle spasms [Unknown]
  - Dyspnoea [Unknown]
  - Chest pain [Unknown]
  - Paraesthesia [Unknown]
  - Abdominal pain upper [Unknown]

NARRATIVE: CASE EVENT DATE: 20160604
